FAERS Safety Report 23722598 (Version 1)
Quarter: 2024Q2

REPORT INFORMATION
  Report Type: Spontaneous
  Country: FR (occurrence: FR)
  Receive Date: 20240409
  Receipt Date: 20240409
  Transmission Date: 20240716
  Serious: Yes (Life-Threatening)
  Sender: FDA-Public Use
  Company Number: None

PATIENT
  Age: 73 Year
  Sex: Male

DRUGS (11)
  1. ROPIVACAINE [Suspect]
     Active Substance: ROPIVACAINE
     Indication: Lung lobectomy
     Dosage: UNK
     Route: 042
     Dates: start: 20230919, end: 20230919
  2. PROPOFOL [Suspect]
     Active Substance: PROPOFOL
     Indication: Lung lobectomy
     Dosage: 200 MILLIGRAM
     Route: 042
     Dates: start: 20230919, end: 20230919
  3. DEXAMETHASONE [Suspect]
     Active Substance: DEXAMETHASONE
     Indication: Lung lobectomy
     Dosage: UNK
     Route: 042
     Dates: start: 20230919, end: 20230919
  4. SUFENTANIL [Suspect]
     Active Substance: SUFENTANIL
     Indication: Lung lobectomy
     Dosage: UNK
     Route: 042
     Dates: start: 20230919, end: 20230919
  5. CISATRACURIUM [Suspect]
     Active Substance: CISATRACURIUM
     Indication: Lung lobectomy
     Dosage: UNK
     Route: 042
     Dates: start: 20230919, end: 20230919
  6. KETAMINE [Suspect]
     Active Substance: KETAMINE
     Indication: Lung lobectomy
     Dosage: UNK
     Route: 042
     Dates: start: 20230919, end: 20230919
  7. CHLORHEXIDINE [Suspect]
     Active Substance: CHLORHEXIDINE\CHLORHEXIDINE GLUCONATE
     Indication: Infection prophylaxis
     Dosage: UNK
     Route: 003
     Dates: start: 20230919, end: 20230919
  8. ACETAMINOPHEN [Concomitant]
     Active Substance: ACETAMINOPHEN
     Dosage: UNK
     Route: 065
  9. CLAVULANIC ACID [Concomitant]
     Active Substance: CLAVULANIC ACID
     Indication: Lung lobectomy
     Dosage: UNK
     Route: 042
     Dates: start: 20230919, end: 20230919
  10. AMOXICILLIN [Concomitant]
     Active Substance: AMOXICILLIN
     Indication: Lung lobectomy
     Dosage: UNK
     Route: 042
     Dates: start: 20230919, end: 20230919
  11. ACUPAN [Concomitant]
     Active Substance: NEFOPAM HYDROCHLORIDE
     Dosage: UNK
     Route: 065

REACTIONS (1)
  - Anaphylactic reaction [Recovered/Resolved]

NARRATIVE: CASE EVENT DATE: 20230919
